FAERS Safety Report 8863171 (Version 2)
Quarter: 2012Q4

REPORT INFORMATION
  Report Type: 
  Country: IT (occurrence: IT)
  Receive Date: 20121026
  Receipt Date: 20121115
  Transmission Date: 20130627
  Serious: Yes (Life-Threatening, Hospitalization, Other)
  Sender: FDA-Public Use
  Company Number: IT-BRISTOL-MYERS SQUIBB COMPANY-17045261

PATIENT
  Age: 60 Year
  Sex: Male
  Weight: 120 kg

DRUGS (4)
  1. COUMADIN TABS 5 MG [Suspect]
     Indication: THROMBOSIS PROPHYLAXIS
     Dates: start: 20110101, end: 20120917
  2. TOPAMAX [Interacting]
     Indication: EPILEPSY
     Dosage: Tabs
Therapy dt:01jan11-17Sep12
     Route: 048
     Dates: start: 20110101, end: 20120917
  3. DINTOINA [Concomitant]
     Indication: EPILEPSY
     Dosage: tabs
     Route: 048
  4. GARDENALE [Concomitant]
     Indication: EPILEPSY
     Dosage: Tabs
     Route: 048

REACTIONS (2)
  - Cerebral haemorrhage [Recovered/Resolved with Sequelae]
  - Drug interaction [Unknown]
